FAERS Safety Report 8348030-1 (Version None)
Quarter: 2012Q2

REPORT INFORMATION
  Report Type: 
  Country: None (occurrence: None)
  Receive Date: 20120509
  Receipt Date: 20120430
  Transmission Date: 20120825
  Serious: Yes (Hospitalization)
  Sender: FDA-Public Use
  Company Number: US-BRISTOL-MYERS SQUIBB COMPANY-16392458

PATIENT
  Age: 80 Year
  Sex: Female
  Weight: 59 kg

DRUGS (10)
  1. MAGNESIUM [Concomitant]
  2. DIGOXIN [Concomitant]
  3. ATENOLOL [Concomitant]
     Route: 048
  4. ZITHROMAX [Concomitant]
  5. VITAMIN D [Concomitant]
     Dosage: 1 DF = 1000 UNITS
     Route: 048
  6. ESTER-C [Concomitant]
  7. COUMADIN [Suspect]
     Indication: ATRIAL FIBRILLATION
     Dosage: 7.5 ON A MONDAY AND 5 THE REST OF THE TIME.
     Dates: start: 20040601
  8. VITAMIN TAB [Concomitant]
     Dosage: 1 DF = 1 TABS
     Route: 048
  9. CALCIUM CARBONATE [Concomitant]
     Dosage: 1 DF = 600 UNITS NOS
     Route: 048
  10. BENICAR HCT [Concomitant]
     Dosage: 1 DF = 40/12.5
     Route: 048

REACTIONS (6)
  - CYSTITIS [None]
  - COLITIS ULCERATIVE [None]
  - RENAL IMPAIRMENT [None]
  - BRONCHITIS [None]
  - INTERNATIONAL NORMALISED RATIO INCREASED [None]
  - PNEUMONIA [None]
